FAERS Safety Report 5016844-1 (Version None)
Quarter: 2006Q2

REPORT INFORMATION
  Report Type: 
  Country: None (occurrence: None)
  Receive Date: 20060526
  Receipt Date: 20060518
  Transmission Date: 20061013
  Serious: Yes (Death, Other)
  Sender: FDA-Public Use
  Company Number: MEDI-0004581

PATIENT
  Sex: Male

DRUGS (1)
  1. ETHYOL [Suspect]

REACTIONS (3)
  - MUCOSAL HAEMORRHAGE [None]
  - MUCOSAL INFLAMMATION [None]
  - SKIN EXFOLIATION [None]
